FAERS Safety Report 25188871 (Version 1)
Quarter: 2025Q2

REPORT INFORMATION
  Report Type: Spontaneous
  Country: US (occurrence: US)
  Receive Date: 20250411
  Receipt Date: 20250411
  Transmission Date: 20250717
  Serious: No
  Sender: BIONPHARMA
  Company Number: US-Bion-014817

PATIENT

DRUGS (1)
  1. COLESEVELAM HYDROCHLORIDE [Suspect]
     Active Substance: COLESEVELAM HYDROCHLORIDE
     Indication: Product used for unknown indication

REACTIONS (1)
  - Hypersensitivity [Unknown]
